FAERS Safety Report 9394956 (Version 1)
Quarter: 2013Q3

REPORT INFORMATION
  Report Type: Spontaneous
  Country: US (occurrence: US)
  Receive Date: 20130711
  Receipt Date: 20130711
  Transmission Date: 20140515
  Serious: Yes (Death)
  Sender: FDA-Public Use
  Company Number: US-COVIDIEN/TYCO HEALTHCARE/MALLINCKRODT-T201300809

PATIENT
  Age: 44 Year
  Sex: Male

DRUGS (7)
  1. OXYCODONE [Suspect]
     Indication: ARTHRALGIA
     Dosage: 5 MG, TID
     Route: 048
     Dates: start: 20130206, end: 20130207
  2. OXYCODONE [Concomitant]
     Indication: ARTHRALGIA
     Dosage: 10 MG, 1/2 TAB TID
     Route: 048
     Dates: start: 20130203, end: 20130206
  3. B COMPLEX                          /00212701/ [Concomitant]
     Dosage: UNK
  4. CO Q10 [Concomitant]
     Dosage: UNK
  5. VITAMIN D                          /00107901/ [Concomitant]
     Dosage: UNK
  6. FISH OIL [Concomitant]
     Dosage: UNK
  7. RESVERATROL [Concomitant]
     Dosage: UNK

REACTIONS (8)
  - Temporomandibular joint syndrome [Recovered/Resolved]
  - Eye pain [Recovered/Resolved]
  - Feeling abnormal [Recovered/Resolved]
  - Drug withdrawal syndrome [Recovered/Resolved]
  - Arthralgia [Recovered/Resolved]
  - Headache [Recovered/Resolved]
  - Dizziness [Recovered/Resolved]
  - Drug ineffective [Recovered/Resolved]
